FAERS Safety Report 5384847-3 (Version None)
Quarter: 2007Q3

REPORT INFORMATION
  Report Type: 
  Country: None (occurrence: None)
  Receive Date: 20070711
  Receipt Date: 20070703
  Transmission Date: 20080115
  Serious: Yes (Life-Threatening)
  Sender: FDA-Public Use
  Company Number: US-GENENTECH-243973

PATIENT
  Age: 72 Year
  Sex: Male

DRUGS (9)
  1. BEVACIZUMAB [Suspect]
     Indication: METASTATIC GASTRIC CANCER
     Dosage: 10 MG/KG, UNK
     Dates: start: 20070514
  2. DOCETAXEL [Suspect]
     Indication: METASTATIC GASTRIC CANCER
     Dosage: 30 MG/M2, UNK
     Route: 042
     Dates: start: 20070514
  3. CISPLATIN [Suspect]
     Indication: METASTATIC GASTRIC CANCER
     Dosage: 25 MG/KG, UNK
     Route: 042
     Dates: start: 20070514
  4. IRINOTECAN HCL [Suspect]
     Indication: METASTATIC GASTRIC CANCER
     Dosage: 50 MG/M2, UNK
     Route: 042
     Dates: start: 20070514
  5. NEXIUM [Concomitant]
     Indication: DRUG USE FOR UNKNOWN INDICATION
     Dosage: 40 MG, BID
  6. NORVASC [Concomitant]
     Indication: DRUG USE FOR UNKNOWN INDICATION
     Dosage: 10 MG, QID
  7. ATIVAN [Concomitant]
     Indication: INSOMNIA
     Dosage: UNK, PRN
  8. DECADRON [Concomitant]
     Indication: DRUG USE FOR UNKNOWN INDICATION
  9. ZOFRAN [Concomitant]
     Indication: DRUG USE FOR UNKNOWN INDICATION

REACTIONS (3)
  - DEHYDRATION [None]
  - HYPOKALAEMIA [None]
  - WOUND INFECTION [None]
